FAERS Safety Report 23702839 (Version 1)
Quarter: 2024Q2

REPORT INFORMATION
  Report Type: Spontaneous
  Country: GB (occurrence: GB)
  Receive Date: 20240403
  Receipt Date: 20240403
  Transmission Date: 20240716
  Serious: Yes (Death, Other)
  Sender: FDA-Public Use
  Company Number: GB-002147023-NVSC2024GB063574

PATIENT

DRUGS (1)
  1. RUXOLITINIB [Suspect]
     Active Substance: RUXOLITINIB
     Indication: Myelofibrosis
     Route: 065

REACTIONS (7)
  - Anaemia [Unknown]
  - Disease progression [Fatal]
  - Myelofibrosis [Fatal]
  - Quality of life decreased [Unknown]
  - Splenomegaly [Unknown]
  - Thrombocytopenia [Unknown]
  - Pain [Unknown]
